FAERS Safety Report 6036752-7 (Version None)
Quarter: 2009Q1

REPORT INFORMATION
  Report Type: 
  Country: None (occurrence: None)
  Receive Date: 20090114
  Receipt Date: 20081222
  Transmission Date: 20090719
  Serious: Yes (Other)
  Sender: FDA-Public Use
  Company Number: GB-PFIZER INC-2008160913

PATIENT

DRUGS (6)
  1. DOXYCYCLINE HYCLATE [Suspect]
     Indication: LOWER RESPIRATORY TRACT INFECTION
     Route: 048
     Dates: start: 20081205, end: 20081206
  2. BECLOMETHASONE DIPROPIONATE [Concomitant]
     Dosage: 200 UG, 2X/DAY
  3. DOTHIEPIN HYDROCHLORIDE [Concomitant]
     Dosage: 50 MG, 1X/DAY
  4. GALANTAMINE HYDROBROMIDE [Concomitant]
     Dosage: 8 MG, UNK
     Route: 048
  5. QUETIAPINE FUMARATE [Concomitant]
     Dosage: 25 MG, 2X/DAY
  6. SALBUTAMOL SULFATE [Concomitant]
     Dosage: 2.5 MG, 4X/DAY

REACTIONS (1)
  - ANGIOEDEMA [None]
